FAERS Safety Report 5864137-2 (Version None)
Quarter: 2008Q3

REPORT INFORMATION
  Report Type: 
  Country: None (occurrence: None)
  Receive Date: 20080829
  Receipt Date: 20080814
  Transmission Date: 20090109
  Serious: Yes (Death)
  Sender: FDA-Public Use
  Company Number: KR-TYCO HEALTHCARE/MALLINCKRODT-T200801250

PATIENT

DRUGS (2)
  1. OPTIRAY 320 [Suspect]
     Indication: COMPUTERISED TOMOGRAM ABDOMEN
     Dates: start: 20080701, end: 20080701
  2. OPTIRAY 320 [Suspect]
     Indication: ANGIOGRAM
     Dosage: 500 ML, SINGLE
     Dates: start: 20080801, end: 20080801

REACTIONS (1)
  - CARDIAC ARREST [None]
